FAERS Safety Report 16186739 (Version 1)
Quarter: 2019Q2

REPORT INFORMATION
  Report Type: Spontaneous
  Country: CN (occurrence: CN)
  Receive Date: 20190411
  Receipt Date: 20190411
  Transmission Date: 20190711
  Serious: Yes (Other)
  Sender: FDA-Public Use
  Company Number: CN-PFIZER INC-2019151459

PATIENT
  Age: 78 Year
  Sex: Male
  Weight: 62 kg

DRUGS (4)
  1. MEDROL [Suspect]
     Active Substance: METHYLPREDNISOLONE
     Indication: BRONCHITIS
     Dosage: 8 MG, 2X/DAY
     Route: 048
     Dates: start: 20190317, end: 20190323
  2. SOLU-MEDROL [Suspect]
     Active Substance: METHYLPREDNISOLONE SODIUM SUCCINATE
     Dosage: 60 MG, DAILY (40MG QD EVERY 8 AM AND 20MG QD EVERY 8 PM)
     Route: 041
     Dates: start: 20190328
  3. SOLU-MEDROL [Suspect]
     Active Substance: METHYLPREDNISOLONE SODIUM SUCCINATE
     Dosage: 40 MG, 2X/DAY
     Dates: start: 20190324, end: 20190327
  4. SOLU-MEDROL [Suspect]
     Active Substance: METHYLPREDNISOLONE SODIUM SUCCINATE
     Indication: BRONCHITIS
     Dosage: 40 MG, 1X/DAY
     Dates: end: 20190316

REACTIONS (1)
  - Oral candidiasis [Recovering/Resolving]

NARRATIVE: CASE EVENT DATE: 20190325
